FAERS Safety Report 11681485 (Version 2)
Quarter: 2015Q4

REPORT INFORMATION
  Report Type: Spontaneous
  Country: GB (occurrence: GB)
  Receive Date: 20151029
  Receipt Date: 20151113
  Transmission Date: 20160304
  Serious: Yes (Other)
  Sender: FDA-Public Use
  Company Number: GB-ROCHE-1652230

PATIENT
  Age: 56 Year
  Sex: Male

DRUGS (5)
  1. RITUXIMAB [Concomitant]
     Active Substance: RITUXIMAB
     Route: 065
  2. VALGANCICLOVIR [Suspect]
     Active Substance: VALGANCICLOVIR
     Indication: PRODUCT USED FOR UNKNOWN INDICATION
     Route: 065
  3. REVLIMID [Suspect]
     Active Substance: LENALIDOMIDE
     Dosage: CYCLE 2
     Route: 048
  4. REVLIMID [Suspect]
     Active Substance: LENALIDOMIDE
     Indication: PRODUCT USED FOR UNKNOWN INDICATION
     Dosage: CYCLE 1
     Route: 048
     Dates: start: 20151008
  5. RITUXIMAB [Concomitant]
     Active Substance: RITUXIMAB
     Indication: LYMPHADENOPATHY
     Route: 065
     Dates: start: 20151008

REACTIONS (3)
  - Cytomegalovirus infection [Recovered/Resolved]
  - Disease progression [Unknown]
  - Neutropenic infection [Recovered/Resolved]
